FAERS Safety Report 10388708 (Version 1)
Quarter: 2014Q1

REPORT INFORMATION
  Report Type: Spontaneous
  Country: US (occurrence: None)
  Receive Date: 20140306
  Receipt Date: 20140306
  Transmission Date: 20141002
  Serious: Yes (Other)
  Sender: FDA-Public Use
  Company Number: 163-21880-13071111

PATIENT
  Age: 59 Year
  Sex: Female
  Weight: 63.5 kg

DRUGS (7)
  1. REVLIMID (LENALIDOMIDE) (10 MILLIGRAM, CAPSULES) [Suspect]
     Indication: PLASMA CELL MYELOMA
     Route: 048
     Dates: start: 201303
  2. ASPIRINE (ACETYLSALICYLIC ACID) (CHEWABLE TABLETS) [Concomitant]
  3. VELCADE (BORTEZOMIB) [Concomitant]
  4. DEXAMETHASONE (TABLETS) [Concomitant]
  5. TYLENOL (PARACETAMOL) (TABLETS) [Concomitant]
  6. OXYCONTIN (OXYCHLORIDE HYDROCHLORIDE) [Concomitant]
  7. ZOLPIDEM TARTRATE [Concomitant]

REACTIONS (1)
  - Platelet count decreased [None]
